FAERS Safety Report 9565426 (Version 1)
Quarter: 2013Q3

REPORT INFORMATION
  Report Type: Spontaneous
  Country: FR (occurrence: FR)
  Receive Date: 20130930
  Receipt Date: 20130930
  Transmission Date: 20140515
  Serious: Yes (Other)
  Sender: FDA-Public Use
  Company Number: FR-ROCHE-1282911

PATIENT
  Age: 14 Year
  Sex: Male

DRUGS (4)
  1. RIVOTRIL [Suspect]
     Indication: PRODUCT USED FOR UNKNOWN INDICATION
     Route: 065
  2. SABRIL [Concomitant]
  3. LIORESAL [Concomitant]
  4. INEXIUM [Concomitant]

REACTIONS (2)
  - Convulsion [Recovered/Resolved]
  - Drug ineffective [Unknown]
